FAERS Safety Report 10569773 (Version 1)
Quarter: 2014Q4

REPORT INFORMATION
  Report Type: Spontaneous
  Country: DE (occurrence: DE)
  Receive Date: 20141107
  Receipt Date: 20141107
  Transmission Date: 20150529
  Serious: Yes (Other)
  Sender: FDA-Public Use
  Company Number: DE-DRREDDYS-GER/GER/14/0044117

PATIENT
  Age: 25 Year
  Sex: Male
  Weight: 74 kg

DRUGS (1)
  1. CETIRIZINE [Suspect]
     Active Substance: CETIRIZINE HYDROCHLORIDE
     Indication: DERMATITIS CONTACT
     Dosage: 5 TO 20 MG DAILY
     Route: 048
     Dates: start: 20081110

REACTIONS (2)
  - Drug dependence [Unknown]
  - Urticaria [Unknown]

NARRATIVE: CASE EVENT DATE: 20081201
